FAERS Safety Report 22185290 (Version 3)
Quarter: 2023Q2

REPORT INFORMATION
  Report Type: Spontaneous
  Country: MA (occurrence: MA)
  Receive Date: 20230407
  Receipt Date: 20230630
  Transmission Date: 20230721
  Serious: Yes (Hospitalization, Other)
  Sender: FDA-Public Use
  Company Number: MA-GLAXOSMITHKLINE-MACH2023HLN015035

PATIENT
  Age: 64 Year
  Sex: Male

DRUGS (1)
  1. DICLOFENAC SODIUM [Suspect]
     Active Substance: DICLOFENAC SODIUM
     Indication: Arthralgia
     Dosage: UNK, AT THE ELBOW CREASE
     Route: 014

REACTIONS (6)
  - Peripheral ischaemia [Recovering/Resolving]
  - Peripheral coldness [Recovering/Resolving]
  - Cyanosis [Recovering/Resolving]
  - Feeling cold [Unknown]
  - Pain in extremity [Unknown]
  - Incorrect route of product administration [Unknown]
